FAERS Safety Report 10243026 (Version 1)
Quarter: 2014Q2

REPORT INFORMATION
  Report Type: Spontaneous
  Country: FR (occurrence: FR)
  Receive Date: 20140618
  Receipt Date: 20140618
  Transmission Date: 20141212
  Serious: Yes (Other)
  Sender: FDA-Public Use
  Company Number: FR-JNJFOC-20140604240

PATIENT
  Age: 58 Year
  Sex: Female

DRUGS (2)
  1. IMODIUM [Suspect]
     Route: 065
  2. IMODIUM [Suspect]
     Indication: DIARRHOEA
     Route: 065

REACTIONS (2)
  - Intestinal perforation [Unknown]
  - Contraindication to medical treatment [Unknown]
